FAERS Safety Report 7187052-3 (Version None)
Quarter: 2010Q4

REPORT INFORMATION
  Report Type: 
  Country: None (occurrence: None)
  Receive Date: 20101222
  Receipt Date: 20100813
  Transmission Date: 20110411
  Serious: Yes (Hospitalization)
  Sender: FDA-Public Use
  Company Number: US-AMGEN-QUU414599

PATIENT

DRUGS (9)
  1. ENBREL [Suspect]
     Indication: PSORIATIC ARTHROPATHY
     Dosage: 50 MG, QWK
     Route: 058
     Dates: start: 20040628
  2. ERGOCALCIFEROL [Concomitant]
     Dosage: 50000 IU, Q2WK
  3. ALENDRONATE SODIUM [Concomitant]
     Dosage: 70 MG, QWK
  4. PREDNISONE [Concomitant]
     Dosage: 5 MG, QD
  5. ACETAMINOPHEN W/ PROPOXYPHENE HCL [Concomitant]
     Dosage: UNK UNK, QD
  6. AMLODIPINE BESYLATE [Concomitant]
     Dosage: 10 MG, QD
  7. LISINOPRIL [Concomitant]
     Dosage: 20 MG, QD
  8. MELOXICAM [Concomitant]
     Dosage: 15 MG, QD
  9. ETODOLAC [Concomitant]
     Dosage: UNK UNK, BID

REACTIONS (24)
  - ARTHRALGIA [None]
  - ARTHRITIS [None]
  - CHEST PAIN [None]
  - DENTAL CARIES [None]
  - FIBROMYALGIA [None]
  - HYPERACUSIS [None]
  - HYPERTENSION [None]
  - JOINT SWELLING [None]
  - MUSCULOSKELETAL PAIN [None]
  - MUSCULOSKELETAL STIFFNESS [None]
  - MYALGIA [None]
  - MYOSITIS [None]
  - OBESITY [None]
  - OEDEMA [None]
  - PAIN [None]
  - PAIN IN EXTREMITY [None]
  - PARAESTHESIA [None]
  - PAROSMIA [None]
  - PHOTOSENSITIVITY REACTION [None]
  - POOR QUALITY SLEEP [None]
  - PSORIATIC ARTHROPATHY [None]
  - STRESS [None]
  - TONSILLITIS [None]
  - UPPER RESPIRATORY TRACT INFECTION [None]
